FAERS Safety Report 6039226-2 (Version None)
Quarter: 2009Q1

REPORT INFORMATION
  Report Type: 
  Country: None (occurrence: None)
  Receive Date: 20090115
  Receipt Date: 20090109
  Transmission Date: 20090719
  Serious: Yes (Other)
  Sender: FDA-Public Use
  Company Number: US-GENENTECH-275013

PATIENT

DRUGS (11)
  1. BLINDED BEVACIZUMAB [Suspect]
     Indication: BREAST CANCER
     Dosage: 10 MG/KG, Q14D
     Route: 042
     Dates: start: 20080603
  2. CYCLOPHOSPHAMIDE [Suspect]
     Indication: BREAST CANCER
     Dosage: 10 MG/KG, Q14D
     Route: 042
     Dates: start: 20080603
  3. DOXORUBICIN HCL [Suspect]
     Indication: BREAST CANCER
     Dosage: 10 MG/KG, Q14D
     Route: 042
     Dates: start: 20080603
  4. PACLITAXEL [Suspect]
     Indication: BREAST CANCER
     Dosage: 10 MG/KG, Q14D
     Route: 042
     Dates: start: 20080603
  5. BLINDED BEVACIZUMAB [Suspect]
     Dosage: 15 MG/KG, Q21D
     Route: 042
  6. CYCLOPHOSPHAMIDE [Suspect]
     Dosage: 15 MG/KG, Q21D
     Route: 042
  7. DOXORUBICIN HCL [Suspect]
     Dosage: 15 MG/KG, Q21D
     Route: 042
  8. PACLITAXEL [Suspect]
     Dosage: 15 MG/KG, Q21D
     Route: 042
  9. CYCLOPHOSPHAMIDE [Suspect]
     Indication: BREAST CANCER
     Dosage: 600 MG/M2, Q14D
     Route: 042
     Dates: start: 20080603
  10. DOXORUBICIN HCL [Suspect]
     Indication: BREAST CANCER
     Dosage: 60 MG/M2, Q14D
     Route: 042
     Dates: start: 20080603
  11. PACLITAXEL [Suspect]
     Indication: BREAST CANCER
     Dosage: 80 MG/M2, Q21D
     Route: 042

REACTIONS (1)
  - PERIPHERAL SENSORY NEUROPATHY [None]
